FAERS Safety Report 24627631 (Version 1)
Quarter: 2024Q4

REPORT INFORMATION
  Report Type: Spontaneous
  Country: GB (occurrence: GB)
  Receive Date: 20241116
  Receipt Date: 20241116
  Transmission Date: 20250115
  Serious: Yes (Hospitalization, Other)
  Sender: AUROBINDO
  Company Number: GB-MHRA-MED-202411051608281840-GRJQN

PATIENT
  Age: 23 Year
  Sex: Male
  Weight: 60 kg

DRUGS (1)
  1. IBUPROFEN [Suspect]
     Active Substance: IBUPROFEN
     Indication: Pyrexia
     Dosage: 200 MILLIGRAM, ONCE A DAY [6 (200MG TABLET) A DAY]
     Route: 065
     Dates: end: 20241030

REACTIONS (2)
  - Upper gastrointestinal haemorrhage [Recovering/Resolving]
  - Medication error [Unknown]
